FAERS Safety Report 4533657-5 (Version None)
Quarter: 2004Q4

REPORT INFORMATION
  Report Type: 
  Country: None (occurrence: None)
  Receive Date: 20041221
  Receipt Date: 20041209
  Transmission Date: 20050328
  Serious: Yes (Death, Other)
  Sender: FDA-Public Use
  Company Number: CH-BRISTOL-MYERS SQUIBB COMPANY-12800017

PATIENT
  Age: 74 Year
  Sex: Female

DRUGS (12)
  1. ENDOXAN [Suspect]
     Indication: NON-HODGKIN'S LYMPHOMA STAGE IV
     Dosage: ADMINISTERED ON 16-JAN; 12-FEB; 12-MAR-02
     Route: 041
     Dates: start: 20020116, end: 20020312
  2. DOXORUBICIN HYDROCHLORIDE [Suspect]
     Indication: NON-HODGKIN'S LYMPHOMA STAGE IV
     Dosage: ADMINISTERED ON 16-JAN; 12-FEB; 12-MAR-02
     Route: 041
     Dates: start: 20020116, end: 20020312
  3. VINCRISTINE [Suspect]
     Indication: NON-HODGKIN'S LYMPHOMA STAGE IV
     Dosage: ADMINISTERED ON 16-JAN; 12-FEB; 12-MAR-02
     Route: 041
     Dates: start: 20020116, end: 20020312
  4. NORVASC [Suspect]
     Indication: CARDIOVASCULAR DISORDER
     Route: 048
     Dates: end: 20020331
  5. ATORVASTATIN CALCIUM [Suspect]
     Indication: CARDIOVASCULAR DISORDER
     Route: 048
     Dates: end: 20020331
  6. SEROPRAM [Suspect]
     Route: 048
     Dates: start: 20020101, end: 20020331
  7. ENALAPRIL MALEATE AND HYDROCHLOROTHIAZIDE [Suspect]
     Indication: CARDIOVASCULAR DISORDER
     Dosage: 12.5 MG/20 MG TABLET
     Route: 048
     Dates: end: 20020331
  8. PREMARIN [Suspect]
     Dosage: TABLET
     Route: 048
     Dates: end: 20020331
  9. BELOC-ZOK [Suspect]
     Indication: CARDIOVASCULAR DISORDER
     Route: 048
     Dates: end: 20020331
  10. MARCOUMAR [Suspect]
     Dosage: TABLET
     Route: 048
     Dates: end: 20020331
  11. PREDNISOLONE [Suspect]
     Indication: NON-HODGKIN'S LYMPHOMA STAGE IV
     Dosage: ADMINISTERED ON 16-JAN; 12-FEB; 12-MAR-02
     Dates: start: 20020116, end: 20020312
  12. AVANDIA [Suspect]
     Dosage: TABLET
     Route: 048
     Dates: start: 20020217, end: 20020310

REACTIONS (15)
  - ARTERIOSCLEROSIS [None]
  - ATRIAL FIBRILLATION [None]
  - BLOOD PH DECREASED [None]
  - BUNDLE BRANCH BLOCK LEFT [None]
  - DIARRHOEA [None]
  - DISEASE RECURRENCE [None]
  - GENERAL PHYSICAL HEALTH DETERIORATION [None]
  - HEPATIC FAILURE [None]
  - HEPATIC NECROSIS [None]
  - INFLAMMATION [None]
  - LOSS OF CONSCIOUSNESS [None]
  - PULMONARY CONGESTION [None]
  - PULMONARY OEDEMA [None]
  - SYNCOPE [None]
  - VOMITING [None]
